FAERS Safety Report 26132970 (Version 1)
Quarter: 2025Q4

REPORT INFORMATION
  Report Type: Spontaneous
  Country: US (occurrence: US)
  Receive Date: 20251209
  Receipt Date: 20251209
  Transmission Date: 20260117
  Serious: Yes (Life-Threatening, Hospitalization, Other)
  Sender: AUROBINDO
  Company Number: US-MLMSERVICE-20251119-PI718348-00108-1

PATIENT
  Age: 58 Year
  Sex: Male

DRUGS (5)
  1. CLOZAPINE [Interacting]
     Active Substance: CLOZAPINE
     Indication: Psychiatric care
     Dosage: 300 MILLIGRAM, DAILY
     Route: 065
  2. RIOCIGUAT [Interacting]
     Active Substance: RIOCIGUAT
     Indication: Pulmonary hypertension
     Dosage: 2.5 MILLIGRAM
     Route: 065
  3. RISPERIDONE [Concomitant]
     Active Substance: RISPERIDONE
     Indication: Psychiatric care
     Dosage: 100 MILLIGRAM
     Route: 065
  4. VALPROIC ACID [Concomitant]
     Active Substance: VALPROIC ACID
     Indication: Paranoia
     Dosage: 1500 MILLIGRAM, DAILY
     Route: 065
  5. VALPROIC ACID [Concomitant]
     Active Substance: VALPROIC ACID
     Indication: Aggression

REACTIONS (11)
  - Toxicity to various agents [Unknown]
  - Delirium [Unknown]
  - Drug interaction [Unknown]
  - Mental status changes [Unknown]
  - Fatigue [Unknown]
  - Gait disturbance [Unknown]
  - Dyskinesia [Unknown]
  - Dysarthria [Unknown]
  - Abdominal distension [Unknown]
  - Blood creatinine increased [Unknown]
  - Pulmonary hypertension [Unknown]
